FAERS Safety Report 14765251 (Version 9)
Quarter: 2019Q3

REPORT INFORMATION
  Report Type: Spontaneous
  Country: US (occurrence: US)
  Receive Date: 20180416
  Receipt Date: 20190918
  Transmission Date: 20191004
  Serious: Yes (Other)
  Sender: FDA-Public Use
  Company Number: US-TAKEDA-2018TUS005773

PATIENT
  Age: 56 Year
  Sex: Female

DRUGS (7)
  1. ALUNBRIG [Suspect]
     Active Substance: BRIGATINIB
     Indication: NON-SMALL CELL LUNG CANCER
     Dosage: 90 MG, UNK
     Route: 048
     Dates: start: 201708
  2. ALUNBRIG [Suspect]
     Active Substance: BRIGATINIB
     Dosage: 180 MG, QD
     Route: 048
     Dates: start: 201712
  3. ALUNBRIG [Suspect]
     Active Substance: BRIGATINIB
     Dosage: 150 MG, UNK
     Route: 048
  4. HYDROCODONE [Suspect]
     Active Substance: HYDROCODONE
     Indication: PAIN
     Dosage: UNK
     Route: 065
  5. ALUNBRIG [Suspect]
     Active Substance: BRIGATINIB
     Dosage: 180 MG, UNK
     Route: 048
  6. ALUNBRIG [Suspect]
     Active Substance: BRIGATINIB
     Dosage: 210 MILLIGRAM, QOD
     Route: 065
  7. ALUNBRIG [Suspect]
     Active Substance: BRIGATINIB
     Dosage: UNK
     Route: 065

REACTIONS (24)
  - Pain [Unknown]
  - Neuropathy peripheral [Unknown]
  - Neoplasm progression [Recovering/Resolving]
  - Constipation [Unknown]
  - Paraesthesia [Unknown]
  - Chest pain [Recovered/Resolved]
  - Skin cancer [Unknown]
  - Balance disorder [Unknown]
  - Arthritis [Unknown]
  - Throat irritation [Unknown]
  - Oral discomfort [Unknown]
  - Headache [Not Recovered/Not Resolved]
  - Abdominal discomfort [Unknown]
  - Burning sensation [Unknown]
  - Cough [Unknown]
  - Dizziness [Unknown]
  - Malaise [Unknown]
  - Vomiting [Unknown]
  - Bradycardia [Unknown]
  - Nausea [Unknown]
  - Weight abnormal [Unknown]
  - Back pain [Unknown]
  - Feeling abnormal [Unknown]
  - Incorrect dose administered [Unknown]

NARRATIVE: CASE EVENT DATE: 20190314
